FAERS Safety Report 4929291-5 (Version None)
Quarter: 2006Q1

REPORT INFORMATION
  Report Type: 
  Country: None (occurrence: None)
  Receive Date: 20060223
  Receipt Date: 20060131
  Transmission Date: 20060701
  Serious: Yes (Other)
  Sender: FDA-Public Use
  Company Number: US200602000094

PATIENT
  Age: 79 Year
  Sex: Male

DRUGS (4)
  1. HUMALOG [Suspect]
     Indication: DIABETES MELLITUS
     Dosage: 9 + 4U, EACH MORNING, UNK
     Dates: start: 19960101
  2. HUMALOG [Suspect]
     Indication: DIABETES MELLITUS
     Dosage: 9 + 4U, EACH MORNING, UNK
     Dates: start: 19960101
  3. HUMALOG [Suspect]
     Indication: DIABETES MELLITUS
     Dosage: 9 + 4U, EACH MORNING, UNK
     Dates: start: 19960101
  4. LANTUS [Concomitant]

REACTIONS (7)
  - BLOOD GLUCOSE INCREASED [None]
  - FEELING ABNORMAL [None]
  - FLUID IMBALANCE [None]
  - KETOACIDOSIS [None]
  - LOSS OF CONSCIOUSNESS [None]
  - POOR QUALITY DRUG ADMINISTERED [None]
  - SHOCK HYPOGLYCAEMIC [None]
